FAERS Safety Report 8965872 (Version 1)
Quarter: 2012Q4

REPORT INFORMATION
  Report Type: 
  Country: US (occurrence: US)
  Receive Date: 20121217
  Receipt Date: 20121217
  Transmission Date: 20130627
  Serious: No
  Sender: FDA-Public Use
  Company Number: US-ABBOTT-12P-163-0996148-00

PATIENT
  Sex: Female
  Weight: 60.38 kg

DRUGS (1)
  1. TRILIPIX [Suspect]
     Indication: BLOOD CHOLESTEROL
     Dates: start: 20120918

REACTIONS (2)
  - Constipation [Unknown]
  - Myalgia [Unknown]
